FAERS Safety Report 4359673-4 (Version None)
Quarter: 2004Q2

REPORT INFORMATION
  Report Type: 
  Country: None (occurrence: None)
  Receive Date: 20040517
  Receipt Date: 20040517
  Transmission Date: 20050107
  Serious: Yes (Life-Threatening)
  Sender: FDA-Public Use
  Company Number: None

PATIENT
  Age: 34 Year
  Sex: Female
  Weight: 83.9154 kg

DRUGS (1)
  1. PAXIL [Suspect]
     Indication: ANXIETY DISORDER
     Dosage: ONE DAILY ORAL
     Route: 048
     Dates: start: 19911001, end: 20041231

REACTIONS (7)
  - CONVULSION [None]
  - DIARRHOEA [None]
  - DIFFICULTY IN WALKING [None]
  - DISORIENTATION [None]
  - DRUG WITHDRAWAL SYNDROME [None]
  - HYPERACUSIS [None]
  - MOVEMENT DISORDER [None]
